FAERS Safety Report 7712644-X (Version None)
Quarter: 2011Q3

REPORT INFORMATION
  Report Type: 
  Country: None (occurrence: None)
  Receive Date: 20110826
  Receipt Date: 20110816
  Transmission Date: 20111222
  Serious: Yes (Death)
  Sender: FDA-Public Use
  Company Number: HK-SANOFI-AVENTIS-2011SA054700

PATIENT
  Age: 29 Year
  Sex: Female

DRUGS (2)
  1. PREDNISOLONE [Concomitant]
     Dates: start: 20100601, end: 20100601
  2. HYDROXYCHLOROQUINE SULFATE [Suspect]
     Indication: SUICIDE ATTEMPT
     Route: 048
     Dates: start: 20100601, end: 20100601

REACTIONS (8)
  - HYPOTENSION [None]
  - HYPOKALAEMIA [None]
  - INTENTIONAL OVERDOSE [None]
  - CARDIAC FAILURE [None]
  - SHOCK [None]
  - VENTRICULAR ARRHYTHMIA [None]
  - CARDIAC ARREST [None]
  - TACHYCARDIA [None]
